FAERS Safety Report 22203634 (Version 1)
Quarter: 2023Q2

REPORT INFORMATION
  Report Type: Spontaneous
  Country: US (occurrence: US)
  Receive Date: 20230412
  Receipt Date: 20230412
  Transmission Date: 20230722
  Serious: No
  Sender: FDA-Public Use
  Company Number: US-JNJFOC-20200240641

PATIENT
  Sex: Male

DRUGS (1)
  1. IMODIUM A-D [Suspect]
     Active Substance: LOPERAMIDE HYDROCHLORIDE
     Indication: Bowel movement irregularity
     Dosage: 36ML OF IMODIUM (LIQUID SUSPENSION) DAILY
     Route: 048

REACTIONS (3)
  - Incorrect dose administered [Unknown]
  - Product size issue [Unknown]
  - Off label use [Unknown]
